FAERS Safety Report 6211905-3 (Version None)
Quarter: 2009Q2

REPORT INFORMATION
  Report Type: 
  Country: None (occurrence: None)
  Receive Date: 20090529
  Receipt Date: 20090514
  Transmission Date: 20091009
  Serious: Yes (Hospitalization)
  Sender: FDA-Public Use
  Company Number: 8046400

PATIENT
  Age: 67 Year
  Sex: Female
  Weight: 53.2 kg

DRUGS (20)
  1. CIMZIA [Suspect]
     Indication: RHEUMATOID ARTHRITIS
     Dosage: 400 MG 1/2W SC
     Route: 058
     Dates: start: 20090408, end: 20090428
  2. CDP870 [Suspect]
     Indication: RHEUMATOID ARTHRITIS
     Dosage: 200 MG 1/2W SC
     Route: 058
     Dates: start: 20090226, end: 20090325
  3. PLACEBO [Suspect]
     Indication: RHEUMATOID ARTHRITIS
     Dosage: 400 MG 1/2W SC
     Route: 058
     Dates: start: 20090408, end: 20090428
  4. PLACEBO [Suspect]
     Indication: RHEUMATOID ARTHRITIS
     Dosage: 200 MG 1/2W SC
     Route: 058
     Dates: start: 20090226, end: 20090325
  5. MAVECOR [Concomitant]
  6. ASPIRIN [Concomitant]
  7. CALCIUM [Concomitant]
  8. TENORMIN [Concomitant]
  9. GLUCOSAMINE [Concomitant]
  10. KLONOPIN [Concomitant]
  11. LORTAB [Concomitant]
  12. ZANAFLEX [Concomitant]
  13. TRANXENE [Concomitant]
  14. LIMBREL [Concomitant]
  15. POTASSIUM CHLORIDE [Concomitant]
  16. PRILOSEC [Concomitant]
  17. VISTARIL [Concomitant]
  18. ZYBAN [Concomitant]
  19. ADDERALL 10 [Concomitant]
  20. VANCOMYCIN HCL [Concomitant]

REACTIONS (13)
  - BACTERIAL INFECTION [None]
  - DISCOMFORT [None]
  - ERYTHEMA [None]
  - FEELING HOT [None]
  - HAEMATOCRIT DECREASED [None]
  - OEDEMA PERIPHERAL [None]
  - OSTEOMYELITIS [None]
  - PAIN IN EXTREMITY [None]
  - PLATELET COUNT DECREASED [None]
  - PROCEDURAL PAIN [None]
  - RED BLOOD CELL SEDIMENTATION RATE INCREASED [None]
  - STAPHYLOCOCCAL INFECTION [None]
  - TENDERNESS [None]
